FAERS Safety Report 14958866 (Version 2)
Quarter: 2018Q2

REPORT INFORMATION
  Report Type: Report from Study
  Country: BR (occurrence: BR)
  Receive Date: 20180531
  Receipt Date: 20180619
  Transmission Date: 20180711
  Serious: Yes (Other)
  Sender: FDA-Public Use
  Company Number: BR-BAYER-2018-100463

PATIENT
  Age: 43 Year
  Sex: Female

DRUGS (2)
  1. YAZ [Suspect]
     Active Substance: DROSPIRENONE\ETHINYL ESTRADIOL
     Indication: CONTRACEPTION
     Route: 048
  2. ALLURENE [Suspect]
     Active Substance: DIENOGEST
     Indication: INTERNAL HAEMORRHAGE

REACTIONS (3)
  - Off label use [None]
  - Internal haemorrhage [None]
  - Product use in unapproved indication [None]
